FAERS Safety Report 17939294 (Version 1)
Quarter: 2020Q2

REPORT INFORMATION
  Report Type: Spontaneous
  Country: DE (occurrence: DE)
  Receive Date: 20200624
  Receipt Date: 20200624
  Transmission Date: 20200714
  Serious: Yes (Hospitalization)
  Sender: FDA-Public Use
  Company Number: DE-PFIZER INC-2020240585

PATIENT
  Age: 81 Year
  Sex: Female
  Weight: 40 kg

DRUGS (12)
  1. TORASEMID [Suspect]
     Active Substance: TORSEMIDE
     Dosage: 20 MG (REPORTED AS 1, 5)
  2. KALINOR-RETARD P [Concomitant]
     Dosage: 600 MG
  3. GALANTAMIN [Concomitant]
     Active Substance: GALANTAMINE
     Dosage: 24 MG, 1X/DAY
  4. CANDESARTAN. [Suspect]
     Active Substance: CANDESARTAN
     Dosage: 8 MG, 1X/DAY
  5. CALCIUM HEXAL [Concomitant]
     Active Substance: CALCIUM CARBONATE
     Dosage: 500 MG, 1X/DAY
  6. PANTOPRAZOL [PANTOPRAZOLE] [Concomitant]
     Active Substance: PANTOPRAZOLE
     Dosage: 20 MG, 1X/DAY
  7. ATORVASTATIN CALCIUM. [Suspect]
     Active Substance: ATORVASTATIN CALCIUM
     Dosage: 40 MG, 1X/DAY
  8. INSULIN GLULISINE [Suspect]
     Active Substance: INSULIN GLULISINE
     Dosage: 300 IU (AS PER SCHEME)
  9. VITAMIN D [COLECALCIFEROL] [Concomitant]
     Active Substance: CHOLECALCIFEROL
     Dosage: 1000 IU, 1X/DAY
  10. INSULIN GLARGINE [Suspect]
     Active Substance: INSULIN GLARGINE
     Dosage: 450 IU (REPORTED AS 8)
  11. BISOPROLOL [Concomitant]
     Active Substance: BISOPROLOL
     Dosage: 2.5 MG, 1X/DAY
  12. ACETYLSALICYLIC ACID [Concomitant]
     Active Substance: ASPIRIN
     Dosage: 100 MG, 1X/DAY

REACTIONS (6)
  - Dehydration [Recovering/Resolving]
  - Fall [Unknown]
  - Somnolence [Unknown]
  - Muscular weakness [Recovering/Resolving]
  - General physical health deterioration [Recovering/Resolving]
  - Confusional state [Unknown]

NARRATIVE: CASE EVENT DATE: 20191212
